FAERS Safety Report 21851792 (Version 9)
Quarter: 2024Q2

REPORT INFORMATION
  Report Type: Report from Study
  Country: US (occurrence: US)
  Receive Date: 20230112
  Receipt Date: 20240502
  Transmission Date: 20240716
  Serious: Yes (Other)
  Sender: FDA-Public Use
  Company Number: US-UCBSA-2022054172

PATIENT
  Age: 4 Year
  Sex: Female
  Weight: 19.048 kg

DRUGS (6)
  1. FINTEPLA [Suspect]
     Active Substance: FENFLURAMINE
     Indication: Severe myoclonic epilepsy of infancy
     Dosage: 1.6 MILLILITER, 2X/DAY (BID)
     Dates: start: 20220728
  2. FINTEPLA [Suspect]
     Active Substance: FENFLURAMINE
     Dosage: 3.2 MILLILITER, 2X/DAY (BID)
  3. FINTEPLA [Suspect]
     Active Substance: FENFLURAMINE
     Dosage: 3.2 MILLILITER, 2X/DAY (BID)
  4. FINTEPLA [Suspect]
     Active Substance: FENFLURAMINE
     Dosage: 3.2 MILLILITER, 2X/DAY (BID)
  5. FINTEPLA [Suspect]
     Active Substance: FENFLURAMINE
     Dosage: 3.2 MILLILITER, 2X/DAY (BID)
  6. FINTEPLA [Suspect]
     Active Substance: FENFLURAMINE
     Dosage: 3.2 MILLILITER, 2X/DAY (BID)

REACTIONS (10)
  - Pulmonary arterial pressure increased [Not Recovered/Not Resolved]
  - Tricuspid valve incompetence [Unknown]
  - Right ventricular systolic pressure increased [Unknown]
  - Aortic dilatation [Unknown]
  - Vagal nerve stimulator implantation [Recovered/Resolved]
  - Hydrocephalus [Not Recovered/Not Resolved]
  - Somnolence [Not Recovered/Not Resolved]
  - Vomiting [Not Recovered/Not Resolved]
  - Nausea [Recovered/Resolved]
  - Respiratory tract infection [Not Recovered/Not Resolved]

NARRATIVE: CASE EVENT DATE: 20220909
